FAERS Safety Report 22529372 (Version 2)
Quarter: 2023Q2

REPORT INFORMATION
  Report Type: Spontaneous
  Country: CN (occurrence: CN)
  Receive Date: 20230607
  Receipt Date: 20230612
  Transmission Date: 20230721
  Serious: Yes (Hospitalization, Other)
  Sender: FDA-Public Use
  Company Number: CN-BAYER-2023A076500

PATIENT
  Age: 67 Year
  Sex: Male
  Weight: 72.5 kg

DRUGS (3)
  1. XARELTO [Suspect]
     Active Substance: RIVAROXABAN
     Indication: Pulmonary embolism
     Dosage: 10 MG, QD
     Route: 048
     Dates: start: 20230403, end: 20230519
  2. XARELTO [Suspect]
     Active Substance: RIVAROXABAN
     Indication: Embolism venous
     Route: 048
  3. XARELTO [Suspect]
     Active Substance: RIVAROXABAN
     Indication: Anticoagulant therapy
     Route: 048

REACTIONS (21)
  - Large intestinal haemorrhage [Recovered/Resolved]
  - Haematochezia [Recovered/Resolved]
  - Gastrointestinal oedema [Unknown]
  - Melaena [Recovered/Resolved]
  - Aortic arteriosclerosis [Unknown]
  - Iliac artery arteriosclerosis [Unknown]
  - Pericardial effusion [Unknown]
  - Gastritis erosive [Unknown]
  - Asthenia [Recovered/Resolved]
  - Dizziness [Recovered/Resolved]
  - Haemoglobin decreased [Recovering/Resolving]
  - Diverticulum intestinal [Unknown]
  - Pelvic fluid collection [Unknown]
  - Pleural effusion [Unknown]
  - Reflux gastritis [Unknown]
  - Chronic gastritis [Unknown]
  - Large intestine polyp [Unknown]
  - Underdose [Unknown]
  - Product prescribing issue [Unknown]
  - Inappropriate schedule of product administration [Unknown]
  - Prescribed underdose [Unknown]

NARRATIVE: CASE EVENT DATE: 20230101
